FAERS Safety Report 19085290 (Version 2)
Quarter: 2021Q4

REPORT INFORMATION
  Report Type: Report from Study
  Country: US (occurrence: US)
  Receive Date: 20210401
  Receipt Date: 20211116
  Transmission Date: 20220303
  Serious: Yes (Hospitalization, Other)
  Sender: FDA-Public Use
  Company Number: US-TAKEDA-2020TUS061576

PATIENT
  Sex: Male

DRUGS (18)
  1. IDURSULFASE [Suspect]
     Active Substance: IDURSULFASE
     Indication: Mucopolysaccharidosis II
     Dosage: UNK
     Route: 042
     Dates: start: 20090219
  2. IDURSULFASE [Suspect]
     Active Substance: IDURSULFASE
     Dosage: UNK, 1/WEEK
     Route: 042
     Dates: start: 20090317
  3. IDURSULFASE [Suspect]
     Active Substance: IDURSULFASE
     Dosage: UNK, 1/WEEK
     Route: 042
     Dates: start: 20090706
  4. IDURSULFASE [Suspect]
     Active Substance: IDURSULFASE
     Dosage: 0.5 MILLIGRAM/KILOGRAM, 1/WEEK
     Route: 042
     Dates: start: 20101221
  5. IDURSULFASE [Suspect]
     Active Substance: IDURSULFASE
     Dosage: 0.96 MILLIGRAM/KILOGRAM, 1/WEEK
     Route: 042
     Dates: start: 20110805
  6. IDURSULFASE [Suspect]
     Active Substance: IDURSULFASE
     Dosage: 0.94 MILLIGRAM/KILOGRAM, 1/WEEK
     Route: 042
     Dates: start: 20120601
  7. IDURSULFASE [Suspect]
     Active Substance: IDURSULFASE
     Dosage: 1 MILLIGRAM/KILOGRAM, 1/WEEK
     Route: 042
     Dates: start: 20200131
  8. PREDNISOLONE [Concomitant]
     Active Substance: PREDNISOLONE
     Indication: Immunomodulatory therapy
     Dosage: UNK
     Route: 048
  9. LACTOBACILLUS ACIDOPHILUS [Concomitant]
     Active Substance: LACTOBACILLUS ACIDOPHILUS
     Indication: Gastrointestinal disorder
     Dosage: UNK
     Route: 048
     Dates: start: 2010
  10. LANSOPRAZOLE [Concomitant]
     Active Substance: LANSOPRAZOLE
     Indication: Gastrooesophageal reflux disease
     Dosage: UNK
     Route: 048
  11. TYLENOL 8HR [Concomitant]
     Active Substance: ACETAMINOPHEN
     Indication: Premedication
     Dosage: UNK
     Route: 048
     Dates: start: 2009
  12. GAMMAGARD [Concomitant]
     Active Substance: HUMAN IMMUNOGLOBULIN G
     Indication: Immunomodulatory therapy
     Dosage: UNK
     Route: 042
  13. GENISTEIN [Concomitant]
     Active Substance: GENISTEIN
     Indication: Phytotherapy
     Dosage: UNK
     Route: 048
  14. MINERALS\VITAMINS [Concomitant]
     Active Substance: MINERALS\VITAMINS
     Indication: General physical health deterioration
     Dosage: UNK
     Route: 048
     Dates: start: 2012
  15. METHOTREXATE [Concomitant]
     Active Substance: METHOTREXATE
     Indication: Immunomodulatory therapy
     Dosage: UNK
     Route: 048
  16. ONDANSETRON [Concomitant]
     Active Substance: ONDANSETRON
     Indication: Nausea
     Dosage: UNK
     Route: 048
  17. DIAZEPAM [Concomitant]
     Active Substance: DIAZEPAM
     Indication: Anxiety
     Dosage: UNK
     Route: 048
  18. CHILDREN^S BENADRYL ALLERGY + SINUS [Concomitant]
     Indication: Premedication
     Dosage: UNK
     Route: 048
     Dates: start: 2009

REACTIONS (3)
  - Pneumonia [Recovered/Resolved]
  - Infusion related reaction [Recovered/Resolved]
  - Flushing [Recovered/Resolved]

NARRATIVE: CASE EVENT DATE: 20121114
